FAERS Safety Report 9500104 (Version 2)
Quarter: 2013Q4

REPORT INFORMATION
  Report Type: Report from Study
  Country: BR (occurrence: BR)
  Receive Date: 20130905
  Receipt Date: 20131224
  Transmission Date: 20140711
  Serious: Yes (Hospitalization, Other)
  Sender: FDA-Public Use
  Company Number: PHHY2013BR096687

PATIENT
  Age: 77 Year
  Sex: Female
  Weight: 48 kg

DRUGS (10)
  1. EXELON PATCH [Suspect]
     Indication: AMNESIA
     Dosage: 1 DF (9MG/5CM3), DAILY (1 PATCH, EVERY 24 HOURS)
     Route: 062
  2. DIOVAN [Concomitant]
     Dosage: 1 DF, DAILY
     Route: 048
  3. CRESTOR [Concomitant]
     Indication: BLOOD CHOLESTEROL
     Dosage: 1 DF, DAILY
     Route: 048
  4. METFORMIN [Concomitant]
     Indication: DIABETES MELLITUS
     Dosage: 1 DF, DAILY
     Route: 048
  5. DEPAKOTE [Concomitant]
     Indication: EPILEPSY
     Dosage: 1 DF, QD (1 TABLET, AT NIGHT)
     Route: 048
  6. MIRTAZAPINE [Concomitant]
     Indication: SLEEP DISORDER
     Dosage: 1 DF, DAILY
     Route: 048
  7. CONCOR [Concomitant]
     Indication: BLOOD PRESSURE ABNORMAL
     Dosage: 1 DF, DAILY
     Route: 048
  8. PANTOPRAZOLE [Concomitant]
     Indication: GASTRIC DISORDER
     Dosage: 3 DF, DAILY
     Route: 048
  9. SIFROL [Concomitant]
     Indication: RESTLESS LEGS SYNDROME
     Dosage: 1 DF, DAILY
     Route: 048
  10. CLOPIDOGREL 1A PHARMA [Concomitant]
     Dosage: 1 DF, DAILY
     Route: 048

REACTIONS (8)
  - Blood sodium decreased [Recovered/Resolved]
  - Nausea [Recovered/Resolved]
  - Asthenia [Not Recovered/Not Resolved]
  - Blood glucose increased [Recovered/Resolved]
  - Weight decreased [Not Recovered/Not Resolved]
  - Application site erythema [Recovering/Resolving]
  - Application site pruritus [Recovering/Resolving]
  - Application site swelling [Recovering/Resolving]
